FAERS Safety Report 16732690 (Version 1)
Quarter: 2019Q3

REPORT INFORMATION
  Report Type: Spontaneous
  Country: AU (occurrence: AU)
  Receive Date: 20190823
  Receipt Date: 20190823
  Transmission Date: 20191005
  Serious: Yes (Other)
  Sender: FDA-Public Use
  Company Number: PHHY2019AU196558

PATIENT
  Age: 70 Year
  Sex: Male

DRUGS (1)
  1. ILEVRO [Suspect]
     Active Substance: NEPAFENAC
     Indication: POSTOPERATIVE CARE
     Route: 065

REACTIONS (1)
  - Cystoid macular oedema [Recovering/Resolving]
